FAERS Safety Report 4888637-7 (Version None)
Quarter: 2005Q4

REPORT INFORMATION
  Report Type: 
  Country: None (occurrence: None)
  Receive Date: 20051215
  Receipt Date: 20050113
  Transmission Date: 20060501
  Serious: Yes (Other)
  Sender: FDA-Public Use
  Company Number: 2004098608

PATIENT
  Age: 49 Year
  Sex: Male
  Weight: 102.0593 kg

DRUGS (2)
  1. BEXTRA [Suspect]
     Indication: PLANTAR FASCIITIS
     Dosage: 20 MG (20 MG,1 IN 1 D),ORAL
     Route: 048
     Dates: start: 20030501, end: 20040501
  2. BEXTRA [Suspect]
     Indication: TENDONITIS
     Dosage: 20 MG (20 MG,1 IN 1 D),ORAL
     Route: 048
     Dates: start: 20030501, end: 20040501

REACTIONS (2)
  - ATRIAL FIBRILLATION [None]
  - VENTRICULAR HYPERTROPHY [None]
